FAERS Safety Report 10866562 (Version 1)
Quarter: 2015Q1

REPORT INFORMATION
  Report Type: Spontaneous
  Country: US (occurrence: None)
  Receive Date: 20150220
  Receipt Date: 20150220
  Transmission Date: 20150721
  Serious: Yes (Other)
  Sender: FDA-Public Use
  Company Number: None

PATIENT
  Age: 76 Year
  Sex: Male
  Weight: 79.38 kg

DRUGS (7)
  1. QNASL [Concomitant]
     Active Substance: BECLOMETHASONE DIPROPIONATE
  2. VIAGRA [Concomitant]
     Active Substance: SILDENAFIL CITRATE
  3. LORATADINE. [Concomitant]
     Active Substance: LORATADINE
  4. LORATADINE. [Concomitant]
     Active Substance: LORATADINE
  5. TRIAMCINOLONE ACETONIDE LOTION USP,0.1% VERSA PHARMA [Suspect]
     Active Substance: TRIAMCINOLONE ACETONIDE
     Indication: ECZEMA
     Dosage: LIGHT TOPICAL APPLICATION TO SKIN, LOTION APPLIED TO SURFACE OF SKIN
     Route: 061
     Dates: start: 20150115, end: 20150115
  6. OMEPRAZOLE. [Concomitant]
     Active Substance: OMEPRAZOLE
  7. FINACEA [Concomitant]
     Active Substance: AZELAIC ACID

REACTIONS (4)
  - Product substitution issue [None]
  - Product quality issue [None]
  - Application site irritation [None]
  - Application site pain [None]

NARRATIVE: CASE EVENT DATE: 20150115
